FAERS Safety Report 9058771 (Version 3)
Quarter: 2013Q1

REPORT INFORMATION
  Report Type: Spontaneous
  Country: CA (occurrence: CA)
  Receive Date: 20130122
  Receipt Date: 20130304
  Transmission Date: 20140127
  Serious: Yes (Other)
  Sender: FDA-Public Use
  Company Number: PHHY2012CA002188

PATIENT
  Sex: Female

DRUGS (4)
  1. ACLASTA [Suspect]
     Indication: OSTEOPOROSIS
     Dosage: UNK
     Route: 042
     Dates: start: 20090127
  2. ACLASTA [Suspect]
     Dosage: UNK
     Route: 042
     Dates: start: 20100129
  3. ACLASTA [Suspect]
     Dosage: UNK
     Route: 042
     Dates: start: 20110222
  4. ACLASTA [Suspect]
     Dosage: UNK
     Route: 042
     Dates: start: 20120223

REACTIONS (3)
  - Lung neoplasm malignant [Unknown]
  - Breast cancer [Unknown]
  - Poor venous access [Unknown]
